FAERS Safety Report 8856765 (Version 2)
Quarter: 2013Q1

REPORT INFORMATION
  Report Type: Spontaneous
  Country: FR (occurrence: None)
  Receive Date: 20121019
  Receipt Date: 20121207
  Transmission Date: 20140127
  Serious: Yes (Hospitalization)
  Sender: FDA-Public Use
  Company Number: 2012CP000134

PATIENT
  Age: 1 Day
  Sex: Female

DRUGS (14)
  1. PERFALGAN [Suspect]
     Route: 064
     Dates: start: 20120304
  2. MIDAZOLAM [Suspect]
     Route: 064
     Dates: start: 20120304
  3. SUFENTANIL [Suspect]
     Route: 064
     Dates: start: 20120304
  4. ATRACURIUM BESYLATE [Suspect]
     Route: 064
     Dates: start: 20120304
  5. TAZOCILLINE [Suspect]
     Route: 064
     Dates: start: 20120316, end: 20120320
  6. BETAMETHASONE [Suspect]
     Route: 064
     Dates: start: 20120316
  7. KETAMINE HYDROCHLORIDE [Suspect]
     Dates: start: 20120317
  8. TRACTOCILE [Suspect]
     Route: 064
     Dates: start: 20120324
  9. ONDANSETRON HCL [Suspect]
     Route: 064
     Dates: start: 20120326
  10. ESOMEPRAZOLE [Suspect]
     Route: 064
     Dates: start: 20120326
  11. LOVENOX [Suspect]
     Route: 064
     Dates: start: 20120326
  12. CLINOMEL [Suspect]
     Route: 064
     Dates: start: 20120326
  13. CIMETIDINE [Suspect]
     Route: 064
     Dates: start: 20120426
  14. EMLA [Suspect]
     Route: 064
     Dates: start: 20120426

REACTIONS (9)
  - Maternal drugs affecting foetus [None]
  - Foetal growth restriction [None]
  - Apnoea neonatal [None]
  - Feeding disorder neonatal [None]
  - Device related sepsis [None]
  - Caesarean section [None]
  - Premature baby [None]
  - Staphylococcus test positive [None]
  - Cerebral haemorrhage [None]
